FAERS Safety Report 4610084-3 (Version None)
Quarter: 2005Q1

REPORT INFORMATION
  Report Type: 
  Country: None (occurrence: None)
  Receive Date: 20050314
  Receipt Date: 20050307
  Transmission Date: 20050727
  Serious: Yes (Death)
  Sender: FDA-Public Use
  Company Number: HQWYE882308MAR05

PATIENT
  Age: 58 Year
  Sex: Female

DRUGS (8)
  1. ZOSYN [Suspect]
     Indication: CHRONIC OBSTRUCTIVE AIRWAYS DISEASE EXACERBATED
     Dosage: ONE DOSE AT 3.375 GRAMS, INTRAVENOUS
     Route: 042
     Dates: start: 20050304, end: 20050304
  2. CALAN [Concomitant]
  3. TRAZODONE HCL [Concomitant]
  4. TRANXENE [Concomitant]
  5. CRESTOR [Concomitant]
  6. VANCOMYCIN [Concomitant]
  7. HYDROCHLOROTHIAZID (HYDROCHLOROTHIAZIDE) [Concomitant]
  8. PLETAL [Concomitant]

REACTIONS (2)
  - CONVULSION [None]
  - NEUROLEPTIC MALIGNANT SYNDROME [None]
